FAERS Safety Report 7748158-0 (Version None)
Quarter: 2011Q3

REPORT INFORMATION
  Report Type: 
  Country: None (occurrence: None)
  Receive Date: 20110913
  Receipt Date: 20110829
  Transmission Date: 20111222
  Serious: Yes (Other)
  Sender: FDA-Public Use
  Company Number: TW-WATSON-2011-14368

PATIENT
  Age: 26 Year
  Sex: Male

DRUGS (1)
  1. ZOLPIDEM TARTRATE [Suspect]
     Dosage: 300 MG, DAILY (MAXIMAL DOSAGE)
     Route: 065

REACTIONS (12)
  - INSOMNIA [None]
  - DRUG ABUSE [None]
  - DELIRIUM [None]
  - OVERDOSE [None]
  - SINUS TACHYCARDIA [None]
  - SUICIDE ATTEMPT [None]
  - WITHDRAWAL SYNDROME [None]
  - DRUG DEPENDENCE [None]
  - ANXIETY [None]
  - CHEST DISCOMFORT [None]
  - AGITATION [None]
  - CONFUSIONAL STATE [None]
